FAERS Safety Report 4392544-6 (Version None)
Quarter: 2004Q3

REPORT INFORMATION
  Report Type: 
  Country: None (occurrence: None)
  Receive Date: 20040702
  Receipt Date: 20040624
  Transmission Date: 20050211
  Serious: Yes (Hospitalization)
  Sender: FDA-Public Use
  Company Number: US-JNJFOC-20040506880

PATIENT
  Age: 78 Year
  Sex: Male

DRUGS (19)
  1. VIADUR [Suspect]
     Indication: PROSTATE CANCER
     Dosage: 120 UG, 1 IN 1 DAY, SUBCUTANEOUS
     Route: 058
     Dates: start: 20040505, end: 20040527
  2. METAMUCIL (PSYLLIUM HYDROPHYLIC MUCILLOID) [Concomitant]
  3. Z0OCOR (SIMVASTATIN) [Concomitant]
  4. COZAAR [Concomitant]
  5. IMDUR [Concomitant]
  6. POTASSIUM (POTASSIUM) [Concomitant]
  7. LASIX [Concomitant]
  8. PAXIL [Concomitant]
  9. MULTIVITAMIN (MULTIVITAMIN) [Concomitant]
  10. PRILOSEC [Concomitant]
  11. LOPRESSOR (METOPRLOL TARTRATE) [Concomitant]
  12. MILK OF MAGNESIUM (MAGNESIUM HYDROXIDE) [Concomitant]
  13. DUCOLAX (BISACODYL) [Concomitant]
  14. TYLENOL [Concomitant]
  15. NTG (GLYCERYL TRINITRATE) [Concomitant]
  16. WINE (ETHANOL) [Concomitant]
  17. PLAVIX [Concomitant]
  18. HYDROCHLOROTHIAZIDE [Concomitant]
  19. ASPIRIN [Concomitant]

REACTIONS (3)
  - IMPLANT EXPULSION [None]
  - IMPLANT SITE REACTION [None]
  - PULMONARY OEDEMA [None]
